FAERS Safety Report 10786152 (Version 3)
Quarter: 2015Q3

REPORT INFORMATION
  Report Type: Spontaneous
  Country: US (occurrence: US)
  Receive Date: 20150211
  Receipt Date: 20150928
  Transmission Date: 20151125
  Serious: No
  Sender: FDA-Public Use
  Company Number: US-ASTRAZENECA-2015SE11440

PATIENT
  Age: 25020 Day
  Sex: Male
  Weight: 115.7 kg

DRUGS (16)
  1. BYDUREON [Suspect]
     Active Substance: EXENATIDE
     Indication: DIABETES MELLITUS
     Route: 058
     Dates: start: 20150121
  2. VITAMIN D [Concomitant]
     Active Substance: CHOLECALCIFEROL
  3. METFORMIN HYDROCHLORIDE. [Concomitant]
     Active Substance: METFORMIN HYDROCHLORIDE
     Indication: TYPE 2 DIABETES MELLITUS
  4. LEVOTHYROXINE. [Concomitant]
     Active Substance: LEVOTHYROXINE
     Indication: THYROID THERAPY
  5. BYDUREON [Suspect]
     Active Substance: EXENATIDE
     Indication: TYPE 2 DIABETES MELLITUS
     Route: 058
     Dates: start: 20150121
  6. FATTY ACID GLYCERIDES [Concomitant]
     Indication: CARDIAC DISORDER
  7. PROSTATE GLAND EXTRACT [Concomitant]
  8. MASON STANDARDIZED MILK THISTL [Concomitant]
     Indication: LIVER DISORDER
  9. REGULAR ASPIRIN [Concomitant]
     Active Substance: ASPIRIN
  10. TESTOSTERONE SHOT [Concomitant]
  11. SIMVASTATIN. [Concomitant]
     Active Substance: SIMVASTATIN
     Indication: BLOOD CHOLESTEROL ABNORMAL
  12. SUPER MULTI VITAMIN [Concomitant]
     Dosage: DAILY
  13. BYDUREON [Suspect]
     Active Substance: EXENATIDE
     Indication: DIABETES MELLITUS
     Route: 058
  14. BYDUREON [Suspect]
     Active Substance: EXENATIDE
     Indication: TYPE 2 DIABETES MELLITUS
     Route: 058
  15. TAMSULOSIN [Concomitant]
     Active Substance: TAMSULOSIN
     Indication: PROSTATE CANCER
  16. VITAMIN D2 [Concomitant]
     Active Substance: ERGOCALCIFEROL
     Indication: BONE DENSITY INCREASED

REACTIONS (7)
  - Weight decreased [Unknown]
  - Skin hypertrophy [Unknown]
  - Anger [Unknown]
  - Intentional product use issue [Unknown]
  - Injection site pain [Unknown]
  - Injection site nodule [Unknown]
  - Injection site haemorrhage [Unknown]

NARRATIVE: CASE EVENT DATE: 20150709
